FAERS Safety Report 6330323-0 (Version None)
Quarter: 2009Q3

REPORT INFORMATION
  Report Type: 
  Country: None (occurrence: None)
  Receive Date: 20090827
  Receipt Date: 20070531
  Transmission Date: 20100115
  Serious: Yes (Other)
  Sender: FDA-Public Use
  Company Number: US-ASTRAZENECA-2006UW25520

PATIENT
  Age: 20035 Day
  Sex: Female
  Weight: 99.8 kg

DRUGS (21)
  1. SEROQUEL [Suspect]
     Indication: HALLUCINATION
     Dosage: 25 MG
     Route: 048
     Dates: start: 20031016
  2. SEROQUEL [Suspect]
     Dosage: STRENGTH-25MG, 50MG DOSE-25MG TO 75 MG
     Route: 048
     Dates: start: 20031016
  3. RISPERDAL [Concomitant]
     Dosage: DOSE-3MG-4MG DAILY
     Dates: start: 20030101
  4. RISPERDAL [Concomitant]
     Dosage: 1MG
  5. REMERON [Concomitant]
     Dates: start: 20030101
  6. ZOLOFT [Concomitant]
     Dates: start: 20030101
  7. LIPITOR [Concomitant]
     Dates: start: 20050101
  8. METFORMIN HCL [Concomitant]
     Dates: start: 20050101
  9. ACETAMINOPHEN [Concomitant]
     Dates: start: 20050101
  10. CYCLOBENZAPRINE [Concomitant]
     Dates: start: 20050101
  11. LORATADINE [Concomitant]
     Dates: start: 20050101
  12. NABUMETONE [Concomitant]
     Dates: start: 20050101
  13. NITROGLYCERIN [Concomitant]
     Dates: start: 20050101
  14. DILANTIN [Concomitant]
     Indication: CONVULSION
     Dates: start: 20040101
  15. NEURONTIN [Concomitant]
     Indication: HEADACHE
     Dosage: 1200-1800 MG DAILY
     Dates: start: 20040101
  16. NIFEDIPINE [Concomitant]
     Dates: start: 20040101
  17. PRILOSEC [Concomitant]
     Dates: start: 20040101
  18. HYDROCHLOROTHIAZIDE [Concomitant]
     Dates: start: 20080101
  19. FUROSEMIDE [Concomitant]
     Dates: start: 20080101
  20. ASPIRIN [Concomitant]
     Dates: start: 20080101
  21. CLARITHROMYCIN [Concomitant]
     Dates: start: 20080101

REACTIONS (3)
  - DIABETES MELLITUS [None]
  - NEUROPATHY PERIPHERAL [None]
  - TYPE 2 DIABETES MELLITUS [None]
